FAERS Safety Report 6637596-5 (Version None)
Quarter: 2010Q1

REPORT INFORMATION
  Report Type: 
  Country: None (occurrence: None)
  Receive Date: 20100317
  Receipt Date: 20100303
  Transmission Date: 20100710
  Serious: Yes (Other)
  Sender: FDA-Public Use
  Company Number: JP-RANBAXY-2010RR-32403

PATIENT
  Age: 74 Year
  Sex: Male

DRUGS (8)
  1. FENOFIBRATE [Suspect]
     Indication: HYPERTRIGLYCERIDAEMIA
     Dosage: 100 MG, UNK
     Route: 048
     Dates: start: 20090831, end: 20091225
  2. LOSARTAN POTASSIUM-HYDROCHLOROTHIAZIDE [Concomitant]
     Indication: DRUG USE FOR UNKNOWN INDICATION
  3. OLMESARTAN MEDOXOMIL [Concomitant]
     Indication: DRUG USE FOR UNKNOWN INDICATION
  4. BISOPROLOL FUMARATE [Concomitant]
     Indication: DRUG USE FOR UNKNOWN INDICATION
  5. CLOPIDOGREL SULFATE [Concomitant]
     Indication: DRUG USE FOR UNKNOWN INDICATION
  6. IFENPRODIL TARTRATE [Concomitant]
     Indication: DRUG USE FOR UNKNOWN INDICATION
  7. ADENOSINE TRIPHOSPHATE DISODIUM [Concomitant]
     Indication: DRUG USE FOR UNKNOWN INDICATION
  8. CARBOCISTEINE [Concomitant]
     Indication: DRUG USE FOR UNKNOWN INDICATION

REACTIONS (1)
  - RENAL IMPAIRMENT [None]
